FAERS Safety Report 9758978 (Version 1)
Quarter: 2013Q4

REPORT INFORMATION
  Report Type: Spontaneous
  Country: US (occurrence: None)
  Receive Date: 20131216
  Receipt Date: 20131216
  Transmission Date: 20140711
  Serious: Yes (Hospitalization, Disabling)
  Sender: FDA-Public Use
  Company Number: 163-21880-11123580(0)

PATIENT
  Age: 74 Year
  Sex: Male

DRUGS (1)
  1. REVLIMID [Suspect]
     Indication: PLASMA CELL MYELOMA
     Dosage: 10 MG, 1 IN 1 D, PO?5 MG, 1 IN 1 D, PO ?5 MG, 1 IN 1 D, PO ?15 MG, 1 IN 1 D, PO ?7.5 MG, 1 IN 2 D, P

REACTIONS (1)
  - Syncope [None]
